FAERS Safety Report 18518374 (Version 2)
Quarter: 2020Q4

REPORT INFORMATION
  Report Type: Spontaneous
  Country: RU (occurrence: RU)
  Receive Date: 20201118
  Receipt Date: 20201203
  Transmission Date: 20210114
  Serious: Yes (Death, Life-Threatening, Hospitalization, Other)
  Sender: FDA-Public Use
  Company Number: RU-PFIZER INC-2020454369

PATIENT
  Age: 96 Year
  Sex: Female
  Weight: 62 kg

DRUGS (3)
  1. TOFACITINIB CITRATE [Suspect]
     Active Substance: TOFACITINIB CITRATE
     Indication: COVID-19
     Dosage: 5 MG, 2X/DAY
     Route: 048
     Dates: start: 20200603, end: 20200606
  2. AZITHROMYCIN ANHYDROUS. [Suspect]
     Active Substance: AZITHROMYCIN ANHYDROUS
     Indication: COVID-19
     Dosage: 500 MG, 1X/DAY
     Dates: start: 20200521, end: 20200526
  3. KALETRA [Suspect]
     Active Substance: LOPINAVIR\RITONAVIR
     Indication: COVID-19
     Dosage: 1 DF (400/100 MG), 2X/DAY
     Dates: start: 20200521, end: 20200603

REACTIONS (10)
  - Renal failure [Unknown]
  - Atrial fibrillation [Unknown]
  - Drug ineffective for unapproved indication [Fatal]
  - COVID-19 pneumonia [Fatal]
  - Cerebral ischaemia [Fatal]
  - Hyperaemia [Unknown]
  - Pulmonary oedema [Unknown]
  - Off label use [Fatal]
  - Hydrothorax [Unknown]
  - Ascites [Unknown]

NARRATIVE: CASE EVENT DATE: 2020
